FAERS Safety Report 6639747-5 (Version None)
Quarter: 2010Q1

REPORT INFORMATION
  Report Type: 
  Country: None (occurrence: None)
  Receive Date: 20100318
  Receipt Date: 20100309
  Transmission Date: 20100710
  Serious: Yes (Other)
  Sender: FDA-Public Use
  Company Number: PHHY2010BR14459

PATIENT
  Age: 37 Year
  Sex: Female
  Weight: 58 kg

DRUGS (2)
  1. PARLODEL [Suspect]
     Indication: BLOOD PROLACTIN INCREASED
     Dosage: 2.5 MG (2 TABLETS DAILY)
     Route: 048
     Dates: start: 19970101
  2. PARLODEL [Suspect]
     Dosage: 2.5 MG (1 TABLET DAILY)

REACTIONS (10)
  - ABDOMINAL DISCOMFORT [None]
  - DIZZINESS [None]
  - HEADACHE [None]
  - NAUSEA [None]
  - POOR QUALITY SLEEP [None]
  - RETCHING [None]
  - SYNCOPE [None]
  - VERTIGO [None]
  - VISUAL IMPAIRMENT [None]
  - VOMITING [None]
